FAERS Safety Report 6577943-6 (Version None)
Quarter: 2010Q1

REPORT INFORMATION
  Report Type: 
  Country: None (occurrence: None)
  Receive Date: 20100211
  Receipt Date: 20100202
  Transmission Date: 20100710
  Serious: Yes (Hospitalization)
  Sender: FDA-Public Use
  Company Number: BR-ABBOTT-08P-020-0477575-00

PATIENT
  Sex: Female
  Weight: 54 kg

DRUGS (6)
  1. HUMIRA [Suspect]
     Indication: RHEUMATOID ARTHRITIS
     Route: 058
     Dates: start: 20071017
  2. ROTAVIRUS TREATMENT MEDICATION [Suspect]
     Indication: DRUG USE FOR UNKNOWN INDICATION
     Dosage: NOT REPORTED
  3. PREDNISONE [Concomitant]
     Indication: RHEUMATOID ARTHRITIS
     Route: 048
  4. SYNTHROID [Concomitant]
     Indication: HYPOTHYROIDISM
     Route: 048
  5. OMEPRAZOLE [Concomitant]
     Indication: GASTRITIS
     Route: 048
     Dates: start: 20091201
  6. CYCLOBENZAPRINE/AMITRIPTYLINE (10MG/20MG) (MAGISTAL FORMULA) [Concomitant]
     Indication: DEPRESSION
     Route: 048

REACTIONS (8)
  - ASTHENIA [None]
  - DECREASED APPETITE [None]
  - DIARRHOEA [None]
  - GENERALISED OEDEMA [None]
  - OEDEMA PERIPHERAL [None]
  - PAIN [None]
  - ROTAVIRUS INFECTION [None]
  - WEIGHT DECREASED [None]
